FAERS Safety Report 10163342 (Version 1)
Quarter: 2014Q2

REPORT INFORMATION
  Report Type: Spontaneous
  Country: US (occurrence: US)
  Receive Date: 20140509
  Receipt Date: 20140509
  Transmission Date: 20141212
  Serious: Yes (Other)
  Sender: FDA-Public Use
  Company Number: US-BAYER-2014-067757

PATIENT
  Age: 20 Year
  Sex: Female
  Weight: 61.22 kg

DRUGS (2)
  1. YAZ [Suspect]
  2. TERCONAZOLE [Concomitant]
     Dosage: 0.8%

REACTIONS (1)
  - Deep vein thrombosis [None]
